FAERS Safety Report 21849126 (Version 5)
Quarter: 2023Q1

REPORT INFORMATION
  Report Type: Spontaneous
  Country: US (occurrence: US)
  Receive Date: 20230111
  Receipt Date: 20230330
  Transmission Date: 20230418
  Serious: Yes (Other)
  Sender: FDA-Public Use
  Company Number: US-BRISTOL-MYERS SQUIBB COMPANY-2022-148402

PATIENT
  Age: 75 Year
  Sex: Female
  Weight: 75.3 kg

DRUGS (3)
  1. ELIQUIS [Suspect]
     Active Substance: APIXABAN
     Indication: Cerebrovascular accident prophylaxis
     Route: 048
     Dates: start: 2018
  2. ALLOPURINOL [Concomitant]
     Active Substance: ALLOPURINOL
     Indication: Product used for unknown indication
     Dates: start: 2005
  3. LASIX [Concomitant]
     Active Substance: FUROSEMIDE
     Indication: Product used for unknown indication

REACTIONS (13)
  - Amyloidosis [Not Recovered/Not Resolved]
  - Myocardial injury [Unknown]
  - Prescribed overdose [Unknown]
  - Cough [Unknown]
  - Peripheral swelling [Unknown]
  - Abdominal distension [Unknown]
  - Arthralgia [Unknown]
  - Dyspnoea [Unknown]
  - Nerve injury [Unknown]
  - Carpal tunnel syndrome [Unknown]
  - Dysphonia [Unknown]
  - Dizziness [Unknown]
  - Myalgia [Unknown]

NARRATIVE: CASE EVENT DATE: 20160101
